FAERS Safety Report 6668148-9 (Version None)
Quarter: 2010Q2

REPORT INFORMATION
  Report Type: 
  Country: None (occurrence: None)
  Receive Date: 20100406
  Receipt Date: 20100326
  Transmission Date: 20101027
  Serious: Yes (Hospitalization)
  Sender: FDA-Public Use
  Company Number: 2009BI025470

PATIENT
  Age: 43 Year
  Sex: Female
  Weight: 98 kg

DRUGS (2)
  1. TYSABRI [Suspect]
     Indication: MULTIPLE SCLEROSIS
     Route: 042
     Dates: start: 20080229, end: 20100208
  2. TYSABRI [Suspect]
     Route: 042
     Dates: start: 20050115, end: 20050115

REACTIONS (6)
  - ASTHENIA [None]
  - DRUG EFFECT DECREASED [None]
  - MULTIPLE SCLEROSIS RELAPSE [None]
  - URINARY TRACT INFECTION [None]
  - VAGINAL INFECTION [None]
  - VISION BLURRED [None]
